FAERS Safety Report 5090024-6 (Version None)
Quarter: 2006Q3

REPORT INFORMATION
  Report Type: 
  Country: None (occurrence: None)
  Receive Date: 20060823
  Receipt Date: 20060623
  Transmission Date: 20061208
  Serious: Yes (Death, Other)
  Sender: FDA-Public Use
  Company Number: 2006051126

PATIENT
  Age: 63 Year
  Sex: Male

DRUGS (1)
  1. BEXTRA [Suspect]
     Indication: ARTHRALGIA
     Dates: start: 20030514, end: 20030522

REACTIONS (11)
  - DRUG HYPERSENSITIVITY [None]
  - DYSPHAGIA [None]
  - HEPATIC FAILURE [None]
  - INSOMNIA [None]
  - NAUSEA [None]
  - RENAL FAILURE [None]
  - RESPIRATORY ARREST [None]
  - SEPTIC SHOCK [None]
  - SKIN GRAFT [None]
  - TOXIC EPIDERMAL NECROLYSIS [None]
  - VOMITING [None]
